FAERS Safety Report 12282972 (Version 1)
Quarter: 2016Q2

REPORT INFORMATION
  Report Type: Spontaneous
  Country: QA (occurrence: QA)
  Receive Date: 20160419
  Receipt Date: 20160419
  Transmission Date: 20160815
  Serious: Yes (Hospitalization)
  Sender: FDA-Public Use
  Company Number: QA-ELI_LILLY_AND_COMPANY-QA201603008053

PATIENT
  Age: 30 Year
  Sex: Female

DRUGS (2)
  1. PROZAC [Suspect]
     Active Substance: FLUOXETINE HYDROCHLORIDE
     Indication: DEPRESSION
     Dosage: 20 MG, QD
     Route: 065
     Dates: start: 20160111
  2. PROZAC [Suspect]
     Active Substance: FLUOXETINE HYDROCHLORIDE
     Indication: MAJOR DEPRESSION
     Dosage: 20 MG, QOD
     Route: 065

REACTIONS (9)
  - Vocal cord disorder [Recovering/Resolving]
  - Aphonia [Recovering/Resolving]
  - Dysphonia [Recovering/Resolving]
  - Headache [Unknown]
  - Dry mouth [Unknown]
  - Sensation of foreign body [Recovering/Resolving]
  - Dysphagia [Unknown]
  - Ear pain [Recovering/Resolving]
  - Tinnitus [Recovering/Resolving]

NARRATIVE: CASE EVENT DATE: 201602
